FAERS Safety Report 10253848 (Version 1)
Quarter: 2014Q2

REPORT INFORMATION
  Report Type: Spontaneous
  Country: US (occurrence: US)
  Receive Date: 20140623
  Receipt Date: 20140623
  Transmission Date: 20141212
  Serious: No
  Sender: FDA-Public Use
  Company Number: US-ZOGENIX, INC.-2011ZX000579

PATIENT
  Sex: Female
  Weight: 68.1 kg

DRUGS (6)
  1. SUMAVEL DOSEPRO [Suspect]
     Indication: MIGRAINE
  2. TREXIMET [Concomitant]
     Indication: MIGRAINE
  3. INDERAL [Concomitant]
     Indication: CARDIAC DISORDER
  4. PROMETHAZINE [Concomitant]
     Indication: NAUSEA
     Dosage: DAILY DOSE: 1 TABLET,
  5. SAVELLA [Concomitant]
     Indication: FIBROMYALGIA
  6. ATIVAN [Concomitant]
     Indication: ANXIETY

REACTIONS (1)
  - Injection site pain [Recovered/Resolved]
